FAERS Safety Report 14775008 (Version 1)
Quarter: 2018Q2

REPORT INFORMATION
  Report Type: Spontaneous
  Country: US (occurrence: US)
  Receive Date: 20180418
  Receipt Date: 20180418
  Transmission Date: 20180711
  Serious: No
  Sender: FDA-Public Use
  Company Number: US-PFIZER INC-2018159301

PATIENT
  Age: 69 Year
  Sex: Female
  Weight: 87.53 kg

DRUGS (1)
  1. IBRANCE [Suspect]
     Active Substance: PALBOCICLIB
     Indication: BREAST CANCER
     Dosage: 125 MG, (D1-21Q28 DAYS)
     Route: 048
     Dates: start: 20180406

REACTIONS (1)
  - Nausea [Unknown]
